FAERS Safety Report 9069218 (Version 1)
Quarter: 2013Q1

REPORT INFORMATION
  Report Type: Report from Study
  Country: US (occurrence: US)
  Receive Date: 20130131
  Receipt Date: 20130131
  Transmission Date: 20140127
  Serious: No
  Sender: FDA-Public Use
  Company Number: US-ABBOTT-12P-163-0999835-00

PATIENT
  Age: 41 Year
  Sex: Female

DRUGS (10)
  1. HUMIRA [Suspect]
     Indication: RHEUMATOID ARTHRITIS
     Route: 058
     Dates: start: 20120920
  2. PREDNISONE [Concomitant]
     Indication: RHEUMATOID ARTHRITIS
  3. MELOXICAM [Concomitant]
     Indication: RHEUMATOID ARTHRITIS
     Dosage: DAILY
  4. METHOTREXATE [Concomitant]
     Indication: RHEUMATOID ARTHRITIS
     Dosage: 2.5 MG, 8 TABS EVERY WEEK
  5. ADVAIR [Concomitant]
     Indication: ASTHMA
  6. LOVASTATIN [Concomitant]
     Indication: BLOOD CHOLESTEROL
     Dosage: DAILY
  7. LISINOPRIL [Concomitant]
     Indication: HYPERTENSION
  8. LEVOTHYROXINE [Concomitant]
     Indication: HYPOTHYROIDISM
  9. METFORMIN ER [Concomitant]
     Indication: DIABETES MELLITUS
  10. FOLIC ACID [Concomitant]
     Indication: PRODUCT USED FOR UNKNOWN INDICATION
     Dosage: DAILY

REACTIONS (1)
  - Inappropriate schedule of drug administration [Unknown]
